FAERS Safety Report 4870778-1 (Version None)
Quarter: 2006Q1

REPORT INFORMATION
  Report Type: 
  Country: None (occurrence: None)
  Receive Date: 20060103
  Receipt Date: 20051114
  Transmission Date: 20060701
  Serious: Yes (Hospitalization)
  Sender: FDA-Public Use
  Company Number: 2005PK02425

PATIENT
  Age: 62 Year
  Sex: Female

DRUGS (2)
  1. ARIMIDEX [Suspect]
     Indication: BREAST CANCER
     Route: 048
     Dates: start: 20040501
  2. TAMOXIFEN [Suspect]
     Indication: BREAST CANCER

REACTIONS (4)
  - FEELING HOT [None]
  - POLYNEUROPATHY [None]
  - RETINAL DETACHMENT [None]
  - SKIN IRRITATION [None]
